FAERS Safety Report 19377008 (Version 1)
Quarter: 2021Q2

REPORT INFORMATION
  Report Type: Report from Study
  Country: None (occurrence: US)
  Receive Date: 20210605
  Receipt Date: 20210605
  Transmission Date: 20210717
  Serious: Yes (Other)
  Sender: FDA-Public Use
  Company Number: US-ABBVIE-21K-163-3931845-00

PATIENT
  Age: 62 Year
  Sex: Male

DRUGS (1)
  1. HUMIRA [Suspect]
     Active Substance: ADALIMUMAB
     Indication: RHEUMATOID ARTHRITIS
     Dosage: CITRATE FREE
     Route: 058
     Dates: start: 20210531

REACTIONS (8)
  - Night sweats [Unknown]
  - Chills [Recovering/Resolving]
  - Abdominal discomfort [Recovering/Resolving]
  - Diabetes mellitus [Unknown]
  - Abdominal pain upper [Recovered/Resolved]
  - Systemic lupus erythematosus [Unknown]
  - Diarrhoea [Recovered/Resolved]
  - Pain [Recovering/Resolving]

NARRATIVE: CASE EVENT DATE: 2021
